FAERS Safety Report 9753955 (Version 1)
Quarter: 2013Q4

REPORT INFORMATION
  Report Type: Spontaneous
  Country: US (occurrence: US)
  Receive Date: 20131213
  Receipt Date: 20131213
  Transmission Date: 20140711
  Serious: No
  Sender: FDA-Public Use
  Company Number: US-GLAXOSMITHKLINE-A0999573A

PATIENT
  Age: 47 Year
  Sex: Male

DRUGS (3)
  1. NICORETTE NICOTINE POLACRILEX CHERRY LOZENGE, 4MG [Suspect]
     Indication: EX-TOBACCO USER
     Dates: start: 20121030, end: 20121101
  2. NEXIUM [Concomitant]
  3. SYNTHROID [Concomitant]

REACTIONS (4)
  - Abdominal discomfort [Recovered/Resolved]
  - Gastric pH decreased [Recovered/Resolved]
  - Gastrooesophageal reflux disease [Recovered/Resolved]
  - Gastrooesophageal reflux disease [Recovered/Resolved]
